FAERS Safety Report 7928488-X (Version None)
Quarter: 2011Q4

REPORT INFORMATION
  Report Type: 
  Country: None (occurrence: None)
  Receive Date: 20111118
  Receipt Date: 20111114
  Transmission Date: 20120403
  Serious: Yes (Other)
  Sender: FDA-Public Use
  Company Number: PHHY2011NL36815

PATIENT
  Sex: Male

DRUGS (15)
  1. ZOLPIDEM TARTRATE [Concomitant]
  2. NIZORAL [Concomitant]
     Dosage: 200 MG, DAILY
     Route: 048
  3. ZOMETA [Suspect]
     Indication: PROSTATE CANCER METASTATIC
     Dosage: 4 MG/5 ML,ONCE EVERY 28 DAYS
     Route: 042
     Dates: start: 20110401
  4. ZOMETA [Suspect]
     Dosage: 4 MG/5 ML,ONCE EVERY 28 DAYS
     Route: 042
     Dates: start: 20110429
  5. ZOMETA [Suspect]
     Dosage: 4 MG/5 ML,ONCE EVERY 28 DAYS
     Route: 042
     Dates: start: 20110817
  6. OMEPRAZOLE [Concomitant]
  7. NIZORAL [Concomitant]
     Dates: start: 20111027
  8. ZOMETA [Suspect]
     Dosage: 4 MG/5 ML,ONCE EVERY 28 DAYS
     Route: 042
     Dates: start: 20110919
  9. LACTULOSE [Concomitant]
  10. SLOW-K [Concomitant]
  11. ACETAMINOPHEN [Concomitant]
  12. ZOMETA [Suspect]
     Dosage: 4 MG/5 ML,ONCE EVERY 28 DAYS
     Route: 042
     Dates: start: 20111017
  13. ZOMETA [Suspect]
     Dosage: 4 MG/5 ML,ONCE EVERY 28 DAYS
     Route: 042
     Dates: start: 20111114
  14. PREDNISOLONE [Concomitant]
  15. IBUPROFEN [Concomitant]

REACTIONS (9)
  - PROSTATIC SPECIFIC ANTIGEN INCREASED [None]
  - FATIGUE [None]
  - PYREXIA [None]
  - HAEMOGLOBIN DECREASED [None]
  - INFLUENZA LIKE ILLNESS [None]
  - BLOOD POTASSIUM DECREASED [None]
  - LUNG DISORDER [None]
  - WEIGHT DECREASED [None]
  - PNEUMONIA [None]
